FAERS Safety Report 4590678-4 (Version None)
Quarter: 2005Q1

REPORT INFORMATION
  Report Type: 
  Country: None (occurrence: None)
  Receive Date: 20050224
  Receipt Date: 20050216
  Transmission Date: 20050727
  Serious: Yes (Other)
  Sender: FDA-Public Use
  Company Number: GB-ABBOTT-05P-167-0291057-00

PATIENT
  Sex: Male

DRUGS (1)
  1. EPILIM TABLETS [Suspect]
     Indication: EPILEPSY

REACTIONS (1)
  - RENAL FAILURE [None]
